FAERS Safety Report 5212660-6 (Version None)
Quarter: 2006Q4

REPORT INFORMATION
  Report Type: 
  Country: None (occurrence: None)
  Receive Date: 20061114
  Receipt Date: 20061006
  Transmission Date: 20070319
  Serious: No
  Sender: FDA-Public Use
  Company Number: S06-USA-04168-01

PATIENT
  Age: 72 Year
  Sex: Female

DRUGS (6)
  1. NAMENDA [Suspect]
     Indication: DEMENTIA ALZHEIMER'S TYPE
     Dosage: 5 MG QD PO
     Route: 048
     Dates: start: 20060922, end: 20060928
  2. NAMENDA [Suspect]
     Indication: DEMENTIA ALZHEIMER'S TYPE
     Dosage: 5 MG BID PO
     Route: 048
     Dates: start: 20060929
  3. ARICEPT [Concomitant]
  4. NORVASC [Concomitant]
  5. CELEBREX [Concomitant]
  6. TAMOXIFEN CITRATE [Concomitant]

REACTIONS (1)
  - CONFUSIONAL STATE [None]
